FAERS Safety Report 14669347 (Version 1)
Quarter: 2018Q1

REPORT INFORMATION
  Report Type: Spontaneous
  Country: US (occurrence: US)
  Receive Date: 20180321
  Receipt Date: 20180321
  Transmission Date: 20180509
  Serious: Yes (Hospitalization)
  Sender: FDA-Public Use
  Company Number: None

PATIENT
  Age: 75 Year
  Sex: Male
  Weight: 65.2 kg

DRUGS (3)
  1. COPANLISIB [Suspect]
     Active Substance: COPANLISIB
     Dates: start: 20180308
  2. GEMCITABINE [Suspect]
     Active Substance: GEMCITABINE\GEMCITABINE HYDROCHLORIDE
     Dates: start: 20180308
  3. CISPLATIN. [Suspect]
     Active Substance: CISPLATIN
     Dates: start: 20180308

REACTIONS (1)
  - Body temperature increased [None]

NARRATIVE: CASE EVENT DATE: 20180318
